FAERS Safety Report 5453435-2 (Version None)
Quarter: 2007Q3

REPORT INFORMATION
  Report Type: 
  Country: None (occurrence: None)
  Receive Date: 20070913
  Receipt Date: 20070830
  Transmission Date: 20080115
  Serious: Yes (Hospitalization, Other)
  Sender: FDA-Public Use
  Company Number: 2007VX002226

PATIENT
  Age: 48 Year
  Sex: Female
  Weight: 91.173 kg

DRUGS (5)
  1. INTERFERON ALFACON-1 [Suspect]
     Indication: HEPATITIS C
     Dosage: 15 UG QD SC
     Route: 058
     Dates: start: 20070731
  2. RIBAVIRIIN [Suspect]
     Indication: HEPATITIS C
     Dosage: 600 MG BID PO
     Route: 048
     Dates: start: 20070731
  3. TRAZODONE HCL [Concomitant]
  4. BUSPIRONE [Concomitant]
  5. EFFEXOR [Concomitant]

REACTIONS (1)
  - SUBARACHNOID HAEMORRHAGE [None]
